FAERS Safety Report 23698350 (Version 1)
Quarter: 2024Q2

REPORT INFORMATION
  Report Type: Spontaneous
  Country: US (occurrence: US)
  Receive Date: 20240402
  Receipt Date: 20240402
  Transmission Date: 20240716
  Serious: Yes (Other)
  Sender: FDA-Public Use
  Company Number: US-BAXTER-2024BAX015903

PATIENT

DRUGS (2)
  1. MYXREDLIN [Suspect]
     Active Substance: INSULIN HUMAN
     Dosage: (IN 0.9% SODIUM CHLORIDE INJECTION)
     Route: 065
  2. ZOSYN [Suspect]
     Active Substance: PIPERACILLIN SODIUM\TAZOBACTAM SODIUM
     Dosage: AT AN UNSPECIFIED DOSE EVERY 8 HOURS (Q8HR)
     Route: 042

REACTIONS (6)
  - Unresponsive to stimuli [Unknown]
  - Wrong product administered [Unknown]
  - Product label on wrong product [Unknown]
  - Product packaging confusion [Unknown]
  - Wrong technique in product usage process [Unknown]
  - Product dispensing error [Unknown]
